FAERS Safety Report 5788236-9 (Version None)
Quarter: 2008Q2

REPORT INFORMATION
  Report Type: 
  Country: None (occurrence: None)
  Receive Date: 20080623
  Receipt Date: 20080609
  Transmission Date: 20081010
  Serious: Yes (Life-Threatening, Hospitalization, Disabling)
  Sender: FDA-Public Use
  Company Number: 230539J07USA

PATIENT
  Age: 40 Year
  Sex: Female

DRUGS (3)
  1. REBIF [Suspect]
     Indication: MULTIPLE SCLEROSIS
     Dosage: 44 MCG, 3 IN 1 WEEKS, SUBCUTANEOUS
     Route: 058
     Dates: start: 20070312, end: 20071101
  2. TEGRETOL [Suspect]
  3. TRILEPTAL [Suspect]

REACTIONS (4)
  - DIALYSIS [None]
  - PANCREATITIS [None]
  - RENAL FAILURE ACUTE [None]
  - THROMBOCYTOPENIC PURPURA [None]
